FAERS Safety Report 5893017-1 (Version None)
Quarter: 2008Q3

REPORT INFORMATION
  Report Type: 
  Country: None (occurrence: None)
  Receive Date: 20080923
  Receipt Date: 20070410
  Transmission Date: 20090109
  Serious: No
  Sender: FDA-Public Use
  Company Number: US-ASTRAZENECA-2007UW02108

PATIENT
  Age: 12067 Day
  Sex: Female
  Weight: 90.9 kg

DRUGS (4)
  1. SEROQUEL [Suspect]
     Indication: SCHIZOPHRENIA
     Route: 048
     Dates: start: 19991201, end: 20050101
  2. RISPERDAL [Concomitant]
     Dates: start: 20020101, end: 20050101
  3. ZYPREXA [Concomitant]
     Dates: start: 19980101
  4. DEPAKOTE [Concomitant]
     Dates: start: 20030101, end: 20050101

REACTIONS (10)
  - ABDOMINAL PAIN [None]
  - ANXIETY [None]
  - BLOOD CHOLESTEROL INCREASED [None]
  - HYPERKERATOSIS [None]
  - HYPERTENSION [None]
  - MUSCULOSKELETAL PAIN [None]
  - NECK PAIN [None]
  - OBESITY [None]
  - PAIN IN EXTREMITY [None]
  - TYPE 2 DIABETES MELLITUS [None]
